FAERS Safety Report 5886749-2 (Version None)
Quarter: 2008Q3

REPORT INFORMATION
  Report Type: 
  Country: None (occurrence: None)
  Receive Date: 20080917
  Receipt Date: 20080909
  Transmission Date: 20090109
  Serious: Yes (Disabling)
  Sender: FDA-Public Use
  Company Number: DE-ABBOTT-08P-062-0475724-00

PATIENT
  Age: 22 Year
  Sex: Male
  Weight: 61 kg

DRUGS (2)
  1. HUMIRA [Suspect]
     Indication: ANKYLOSING SPONDYLITIS
     Route: 058
     Dates: start: 20070901, end: 20080601
  2. INDOMETHACIN [Concomitant]
     Indication: ANKYLOSING SPONDYLITIS
     Dosage: 150 MILLIGRAM DAILY
     Dates: start: 20080601

REACTIONS (1)
  - TOE AMPUTATION [None]
